FAERS Safety Report 5197457-8 (Version None)
Quarter: 2006Q4

REPORT INFORMATION
  Report Type: 
  Country: None (occurrence: None)
  Receive Date: 20060927
  Receipt Date: 20060608
  Transmission Date: 20070319
  Serious: No
  Sender: FDA-Public Use
  Company Number: US-CVT-061284

PATIENT
  Age: 43 Year
  Sex: Female

DRUGS (1)
  1. RANEXA(RANOTAZINE)  FILM-COATED TABLET, 500MG [Suspect]
     Indication: ANGINA PECTORIS
     Dosage: UNK, UNK, UNK
     Dates: start: 20060501

REACTIONS (4)
  - BLOOD CHOLESTEROL DECREASED [None]
  - BLOOD TRIGLYCERIDES DECREASED [None]
  - INVESTIGATION [None]
  - THERAPEUTIC RESPONSE UNEXPECTED [None]
